FAERS Safety Report 4664157-X (Version None)
Quarter: 2005Q2

REPORT INFORMATION
  Report Type: 
  Country: None (occurrence: None)
  Receive Date: 20050516
  Receipt Date: 20050503
  Transmission Date: 20051028
  Serious: Yes (Other)
  Sender: FDA-Public Use
  Company Number: 430003E04USA

PATIENT
  Age: 46 Year
  Sex: Female
  Weight: 45.36 kg

DRUGS (3)
  1. NOVANTRONE [Suspect]
     Indication: MULTIPLE SCLEROSIS
     Dosage: 12 MG/M2, 1 IN 3 MONTHS, INTRAVENOUS
     Route: 042
     Dates: start: 20020820, end: 20040524
  2. AMANTADINE HCL [Concomitant]
  3. TRIMETHOPRIM [Concomitant]

REACTIONS (8)
  - CARDIAC DISORDER [None]
  - DILATATION VENTRICULAR [None]
  - EJECTION FRACTION DECREASED [None]
  - HYPERKINESIA [None]
  - MITRAL VALVE INCOMPETENCE [None]
  - MULTIPLE GATED ACQUISITION SCAN ABNORMAL [None]
  - TRICUSPID VALVE INCOMPETENCE [None]
  - VENTRICULAR DYSFUNCTION [None]
